FAERS Safety Report 19817355 (Version 3)
Quarter: 2022Q3

REPORT INFORMATION
  Report Type: Spontaneous
  Country: US (occurrence: US)
  Receive Date: 20210910
  Receipt Date: 20220802
  Transmission Date: 20221027
  Serious: No
  Sender: FDA-Public Use
  Company Number: US-PFIZER INC-202101037923

PATIENT
  Age: 63 Year
  Sex: Female
  Weight: 122.47 kg

DRUGS (1)
  1. XELJANZ [Suspect]
     Active Substance: TOFACITINIB CITRATE
     Indication: Rheumatoid arthritis
     Dosage: 5 MG, 2X/DAY
     Route: 048
     Dates: start: 2015, end: 20210726

REACTIONS (3)
  - Intentional product misuse [Unknown]
  - Dyspnoea [Unknown]
  - Therapeutic response unexpected [Unknown]
